FAERS Safety Report 6271164-2 (Version None)
Quarter: 2009Q3

REPORT INFORMATION
  Report Type: 
  Country: None (occurrence: None)
  Receive Date: 20090717
  Receipt Date: 20070307
  Transmission Date: 20100115
  Serious: Yes (Hospitalization, Other)
  Sender: FDA-Public Use
  Company Number: US-ASTRAZENECA-2006UW10932

PATIENT
  Age: 19584 Day
  Sex: Male
  Weight: 113.9 kg

DRUGS (48)
  1. SEROQUEL [Suspect]
     Indication: POST-TRAUMATIC STRESS DISORDER
     Route: 048
  2. SEROQUEL [Suspect]
     Indication: DEPRESSION
     Route: 048
  3. SEROQUEL [Suspect]
     Indication: INSOMNIA
     Route: 048
  4. SEROQUEL [Suspect]
     Dosage: 25-400 MG
     Route: 048
     Dates: start: 20021127
  5. SEROQUEL [Suspect]
     Dosage: 25-400 MG
     Route: 048
     Dates: start: 20021127
  6. SEROQUEL [Suspect]
     Dosage: 25-400 MG
     Route: 048
     Dates: start: 20021127
  7. RISPERDAL [Concomitant]
  8. ZYPREXA [Concomitant]
  9. INSULIN GLARGINE HUMAN [Concomitant]
     Dosage: 20 UNITS, 50 UNITS, 75 UNITS, 100 UNITS AT BEDTIME
     Route: 058
  10. PHENYLTOLOXAMINE [Concomitant]
     Indication: HEADACHE
     Dosage: 1 TABLET TWICE DAYS AS NEDDED
     Route: 048
  11. TRAZODONE HCL [Concomitant]
     Indication: SLEEP DISORDER
     Dosage: 50-100 MG 1 TABLET AT BED TIME
     Route: 048
  12. TRAZODONE HCL [Concomitant]
     Indication: DEPRESSION
     Dosage: 50-100 MG 1 TABLET AT BED TIME
     Route: 048
  13. TRAZODONE HCL [Concomitant]
     Indication: ANXIETY
     Dosage: 50-100 MG 1 TABLET AT BED TIME
     Route: 048
  14. PEROXETINE HCL [Concomitant]
     Indication: DEPRESSION
     Dosage: 40-60 MG
     Route: 048
  15. PEROXETINE HCL [Concomitant]
     Indication: ANXIETY
     Dosage: 40-60 MG
     Route: 048
  16. INSULIN ASPART HUMAN [Concomitant]
     Dosage: 15-180 UNITS
     Route: 058
  17. METOCLOPRAMIDE [Concomitant]
     Indication: IMPAIRED GASTRIC EMPTYING
     Dosage: ONE TABLET FOUR TIMES DAY BEFORE MEALS AND AT BED TIME
     Route: 048
  18. VALSARTAN [Concomitant]
     Indication: HYPERTENSION
     Dosage: 80 MG PO AM, 160 MG HALF TABLET IN MORNING
     Route: 048
  19. SIMVASTATIN [Concomitant]
     Indication: BLOOD CHOLESTEROL
     Dosage: 40 MG QHS, 8- MG HALF TABLET BED TIME
     Route: 048
  20. METFORMIN HCL [Concomitant]
     Indication: DEPRESSION
     Dosage: 1500-2000 MG
     Route: 048
  21. HUMULIN N [Concomitant]
     Dosage: 20-210 UNITS
     Route: 058
  22. CLONAZEPAM [Concomitant]
     Dosage: 0.5-2 MG
     Route: 048
  23. LAMOTRIGINE [Concomitant]
     Route: 048
  24. LAMOTRIGINE [Concomitant]
     Dosage: 1 TABLET IN MORNING FOR 2 WEEKS, 2 TABLET IN MORNING FOR 2 WEEKS, 4 TABLET IN THE MORNING FOR 2 DAYS
     Route: 048
  25. GEMFIBROZIL [Concomitant]
     Indication: BLOOD CHOLESTEROL
     Route: 048
  26. BACLOFEN [Concomitant]
     Indication: MUSCLE SPASMS
     Route: 048
  27. ROSIGLITAZONE MALEATE [Concomitant]
     Route: 048
  28. CYCLOBENZAPRINE [Concomitant]
     Route: 048
  29. CHLORPHENIRAMIN MALEATE [Concomitant]
     Indication: SINUS CONGESTION
     Route: 048
  30. AMITRIPTYLINE HCL [Concomitant]
     Route: 048
  31. DIAZEPAM [Concomitant]
     Route: 048
  32. CITALOPRAM HYDROCHLORIDE [Concomitant]
     Indication: DEPRESSION
     Dosage: 10-40 MG
     Route: 048
  33. CITALOPRAM HYDROCHLORIDE [Concomitant]
     Indication: ANXIETY
     Dosage: 10-40 MG
     Route: 048
  34. CITALOPRAM HYDROCHLORIDE [Concomitant]
     Indication: POST-TRAUMATIC STRESS DISORDER
     Dosage: 10-40 MG
     Route: 048
  35. ENOXAPARIN SODIUM [Concomitant]
     Dosage: 0.3-0.4 ML
     Route: 058
  36. MULTI-VITAMIN [Concomitant]
     Indication: VITAMIN SUPPLEMENTATION
     Dosage: 1 TABLET EVERY DAY
     Route: 048
  37. GABAPENTIN [Concomitant]
     Dosage: 900-1200 MG
     Route: 048
  38. IRBESARTAN [Concomitant]
     Indication: BLOOD PRESSURE
     Route: 048
  39. HYDROCODONE BITARTRATE + ACETAMINOPHEN [Concomitant]
     Indication: PAIN
     Dosage: 5 MG/500 MG, 7.5 MG/ 500 MG EVERY 6 HOUR AS NEEDED
     Route: 048
  40. VENLAFAXINE HCL [Concomitant]
     Dosage: 37.5-150 MG
     Route: 048
  41. SERTRALINE HCL [Concomitant]
     Indication: AFFECTIVE DISORDER
     Route: 048
  42. SERTRALINE HCL [Concomitant]
     Indication: NERVOUSNESS
     Route: 048
  43. OXAPROZIN [Concomitant]
     Indication: ARTHRITIS
     Route: 048
  44. METHOCARBAMOL [Concomitant]
     Route: 048
  45. INSULIN LISPRO HUMAN [Concomitant]
     Dosage: 10 UNITS THREE TIMES A DAY
     Route: 058
  46. SUMATRIPTAN SUCCINATE [Concomitant]
     Dosage: 50 MG HALF TABLET AS NEEDED
     Route: 048
  47. ALLOPURINOL [Concomitant]
     Route: 048
  48. FELODIPINE [Concomitant]
     Route: 048

REACTIONS (6)
  - BLOOD GLUCOSE INCREASED [None]
  - DIABETES MELLITUS [None]
  - DIABETIC GASTROPARESIS [None]
  - DIABETIC KETOACIDOSIS [None]
  - HYPERGLYCAEMIA [None]
  - HYPOGLYCAEMIA [None]
